FAERS Safety Report 9735297 (Version 2)
Quarter: 2014Q1

REPORT INFORMATION
  Report Type: Spontaneous
  Country: GB (occurrence: GB)
  Receive Date: 20131206
  Receipt Date: 20140211
  Transmission Date: 20141002
  Serious: Yes (Hospitalization, Other)
  Sender: FDA-Public Use
  Company Number: GB-TEVA-448686ISR

PATIENT
  Age: 34 Year
  Sex: Female
  Weight: 99.8 kg

DRUGS (11)
  1. LANSOPRAZOLE [Suspect]
     Indication: GASTROOESOPHAGEAL REFLUX PROPHYLAXIS
     Dosage: 30 MG, ONCE
     Route: 048
     Dates: start: 20100907, end: 20100928
  2. IMMUNE GLOBULIN [Suspect]
     Indication: HAEMATOLOGY TEST ABNORMAL
     Dosage: 1000 MG/KG, UNKNOWN
     Route: 042
  3. IMMUNE GLOBULIN [Suspect]
     Dosage: 1000 MG/KG, QD
     Route: 042
     Dates: start: 20100922, end: 20100923
  4. RITUXIMAB [Suspect]
     Indication: HAEMATOLOGY TEST ABNORMAL
     Dosage: 375 MG/M2, BIW
     Route: 041
     Dates: start: 20100917, end: 20100924
  5. NPLATE [Suspect]
     Indication: IMMUNE THROMBOCYTOPENIC PURPURA
     Dosage: 1 MG/KG, UNKNOWN
     Route: 058
     Dates: start: 20100920, end: 20100920
  6. NORETHINDRONE [Suspect]
     Indication: PRODUCT USED FOR UNKNOWN INDICATION
     Dosage: UNK UNK, TID
     Route: 048
     Dates: start: 20100922, end: 20100928
  7. TRAXYL [Suspect]
     Indication: PRODUCT USED FOR UNKNOWN INDICATION
     Dosage: 1 DF, QID
     Dates: start: 20100922, end: 20100928
  8. DEXAMETHASONE [Suspect]
     Indication: ANTIEMETIC SUPPORTIVE CARE
     Dosage: UNK UNK, UNKNOWN
     Route: 048
     Dates: start: 20100907, end: 20100910
  9. DEXAMETHASONE [Suspect]
     Dosage: UNK UNK, UNKNOWN
     Route: 065
     Dates: start: 20100907, end: 20101010
  10. VINCRISTINE SULFATE [Concomitant]
     Indication: PRODUCT USED FOR UNKNOWN INDICATION
  11. ANTI-D (RHO) IMMUNOGLOBULIN [Concomitant]
     Indication: IMMUNE THROMBOCYTOPENIC PURPURA

REACTIONS (9)
  - Haemorrhage [Unknown]
  - Rectal haemorrhage [Unknown]
  - Rash maculo-papular [Recovered/Resolved]
  - Melaena [Unknown]
  - Purpura [Recovered/Resolved]
  - Vaginal haemorrhage [Unknown]
  - Rash erythematous [Recovered/Resolved]
  - Arthralgia [Unknown]
  - Haemoglobin decreased [Unknown]
